FAERS Safety Report 10583618 (Version 2)
Quarter: 2014Q4

REPORT INFORMATION
  Report Type: Report from Study
  Country: CA (occurrence: CA)
  Receive Date: 20141114
  Receipt Date: 20141114
  Transmission Date: 20150529
  Serious: Yes (Other)
  Sender: FDA-Public Use
  Company Number: PHHY2014CA039250

PATIENT
  Age: 77 Year
  Sex: Male

DRUGS (1)
  1. SANDOSTATIN LAR DEPOT [Suspect]
     Active Substance: OCTREOTIDE ACETATE
     Indication: CARCINOID SYNDROME
     Dosage: 30 MG, EVERY 4 WEEKS
     Route: 030
     Dates: start: 20140103

REACTIONS (17)
  - Decreased appetite [Unknown]
  - Apathy [Unknown]
  - Hypophagia [Unknown]
  - Hypoaesthesia [Unknown]
  - Depression [Unknown]
  - Therapeutic response decreased [Unknown]
  - Depressed mood [Unknown]
  - Peripheral coldness [Unknown]
  - Blood pressure systolic increased [Unknown]
  - Malaise [Unknown]
  - Suicidal ideation [Unknown]
  - Nasopharyngitis [Unknown]
  - Heart rate decreased [Unknown]
  - Abdominal mass [Unknown]
  - Sleep disorder [Unknown]
  - Weight decreased [Unknown]
  - Nausea [Unknown]

NARRATIVE: CASE EVENT DATE: 20140326
